FAERS Safety Report 11889186 (Version 19)
Quarter: 2019Q2

REPORT INFORMATION
  Report Type: Spontaneous
  Country: US (occurrence: US)
  Receive Date: 20160105
  Receipt Date: 20190423
  Transmission Date: 20190711
  Serious: Yes (Hospitalization, Other)
  Sender: FDA-Public Use
  Company Number: US-PFIZER INC-2015443571

PATIENT
  Age: 76 Year
  Sex: Female
  Weight: 78 kg

DRUGS (19)
  1. PREDNISONE. [Concomitant]
     Active Substance: PREDNISONE
     Dosage: 5 MG, DAILY
     Route: 048
  2. LEVOTHYROXINE. [Concomitant]
     Active Substance: LEVOTHYROXINE
     Dosage: 137 UG, 1X/DAY (TAKE IN THE MORNING ON AN EMPTY STOMACH)
     Route: 048
  3. SILVER SULFADIAZINE. [Concomitant]
     Active Substance: SILVER SULFADIAZINE
     Dosage: UNK UNK, DAILY
     Route: 061
  4. TERIPARATIDE RECOMBINANT [Concomitant]
     Dosage: 20 UG, DAILY (INJECT 0.08 ML INTO THE SKIN DAILY FOR 28 DAYS)[600 MCG/2.4ML]
  5. XELJANZ [Suspect]
     Active Substance: TOFACITINIB CITRATE
     Dosage: 5 MG, 2X/DAY
     Route: 048
  6. NITROGLYCERIN. [Concomitant]
     Active Substance: NITROGLYCERIN
     Indication: CHEST PAIN
     Dosage: 0.4 MG, AS NEEDED (1 TABLET UNDER THE TONGUE EVERY 5 MINUTES AS NEEDED FOR UP TO 3 DOSES)
     Route: 060
  7. XELJANZ [Suspect]
     Active Substance: TOFACITINIB CITRATE
     Indication: ARTHRALGIA
     Dosage: 5 MG, 1X/DAY
     Route: 048
  8. OXYCODONE HYDROCHLORIDE/PARACETAMOL [Concomitant]
     Indication: PAIN
     Dosage: 1 DF, 4X/DAY (OXYCODONE HYDROCHLORIDE: 5MG/ PARACETAMOL: 325 MG)
     Route: 048
  9. PANTOPRAZOLE SODIUM SESQUIHYDRATE [Concomitant]
     Active Substance: PANTOPRAZOLE SODIUM
     Dosage: 40 MG, DAILY (TAKE 1 TABLET BY MOUTH DAILY)
     Route: 048
  10. MYCOSTATIN [Concomitant]
     Active Substance: NYSTATIN
     Dosage: UNK, 2X/DAY [APPLY TOPICALLY]
     Route: 061
  11. INSULIN GLARGINE [Concomitant]
     Active Substance: INSULIN GLARGINE
     Dosage: 8 IU, 1X/DAY (INJECT 8 UNITS INTO THE SKIN NIGHTLY)
     Route: 058
  12. INSULIN ASPART [Concomitant]
     Active Substance: INSULIN ASPART
     Dosage: UNK (USE AS DIRECTED)
  13. METOPROLOL SUCCINATE. [Concomitant]
     Active Substance: METOPROLOL SUCCINATE
     Dosage: 50 MG, 2X/DAY
     Route: 048
  14. XELJANZ [Suspect]
     Active Substance: TOFACITINIB CITRATE
     Indication: RHEUMATOID ARTHRITIS
     Dosage: 5 MG, 2X/DAY (ONCE IN MORNING AND ONCE AT NIGHT)
     Route: 048
     Dates: start: 201410
  15. GABAPENTIN. [Concomitant]
     Active Substance: GABAPENTIN
     Dosage: 800 MG, DAILY (TAKE 2 CAPSULES BY MOUTH NIGHTLY)
     Route: 048
  16. OXYBUTYNIN. [Concomitant]
     Active Substance: OXYBUTYNIN CHLORIDE
     Dosage: 5 MG, 2X/DAY
     Route: 048
  17. POLYETHYLENE GLYCOL [Concomitant]
     Active Substance: POLYETHYLENE GLYCOLS
     Indication: CONSTIPATION
     Dosage: 17 G, AS NEEDED (TAKE 17 G BY MOUTH DAILY AS NEEDED)
     Route: 048
  18. DOCUSATE SODIUM AND SENNA [Concomitant]
     Active Substance: DOCUSATE SODIUM\SENNOSIDES
     Dosage: 1 DF, 1X/DAY (TAKE 1 TABLET BY MOUTH NIGHTLY) [DOCUSATE SODIUM: 50MG/ SENNA: 8.6MG]
     Route: 048
  19. TORASEMIDE [Concomitant]
     Active Substance: TORSEMIDE
     Dosage: 10 MG, WEEKLY [ONCE A WEEK]
     Route: 048

REACTIONS (14)
  - Pneumonia [Recovered/Resolved]
  - Feeling abnormal [Unknown]
  - Intentional product misuse [Unknown]
  - Rheumatoid lung [Not Recovered/Not Resolved]
  - Hypertension [Recovering/Resolving]
  - Acne [Recovered/Resolved]
  - Rash [Recovered/Resolved]
  - Urinary tract infection [Recovered/Resolved]
  - Blister [Recovered/Resolved]
  - Back disorder [Not Recovered/Not Resolved]
  - Fatigue [Not Recovered/Not Resolved]
  - Wrist fracture [Not Recovered/Not Resolved]
  - Fall [Not Recovered/Not Resolved]
  - Upper limb fracture [Not Recovered/Not Resolved]

NARRATIVE: CASE EVENT DATE: 20150820
